FAERS Safety Report 22399054 (Version 1)
Quarter: 2023Q2

REPORT INFORMATION
  Report Type: Other
  Country: NL (occurrence: ES)
  Receive Date: 20230602
  Receipt Date: 20230602
  Transmission Date: 20230721
  Serious: Yes (Other)
  Sender: FDA-Public Use
  Company Number: None

PATIENT

DRUGS (1)
  1. PITAVASTATIN [Suspect]
     Active Substance: PITAVASTATIN
     Indication: Hypercholesterolaemia
     Dosage: 2MG, QD - 1 COMPRIMIDO CADA D A CR NICO
     Route: 048
     Dates: start: 20230120, end: 20230518

REACTIONS (2)
  - Oedema peripheral [Recovering/Resolving]
  - Myalgia [Recovering/Resolving]

NARRATIVE: CASE EVENT DATE: 20230508
